FAERS Safety Report 20786555 (Version 2)
Quarter: 2022Q2

REPORT INFORMATION
  Report Type: Report from Study
  Country: US (occurrence: US)
  Receive Date: 20220505
  Receipt Date: 20220509
  Transmission Date: 20220720
  Serious: Yes (Hospitalization)
  Sender: FDA-Public Use
  Company Number: US-JNJFOC-20220456723

PATIENT
  Age: 29 Year
  Sex: Female
  Weight: 45.400 kg

DRUGS (3)
  1. INFLIXIMAB [Suspect]
     Active Substance: INFLIXIMAB
     Indication: Inflammatory bowel disease
     Route: 042
     Dates: start: 20060313, end: 20061211
  2. STELARA [Concomitant]
     Active Substance: USTEKINUMAB
     Dates: start: 201702, end: 201704
  3. STELARA [Concomitant]
     Active Substance: USTEKINUMAB
     Dosage: RE-INITIATED ON UNKNOWN DATE AND CONTINUES (LAST DATE OF ADMINISTRATION 04-FEB-2022).
     Dates: start: 20171005, end: 20200911

REACTIONS (3)
  - Systemic inflammatory response syndrome [Recovered/Resolved]
  - Abdominal pain [Recovered/Resolved]
  - Sepsis [Recovered/Resolved]

NARRATIVE: CASE EVENT DATE: 20220202
